FAERS Safety Report 5754971-1 (Version None)
Quarter: 2008Q2

REPORT INFORMATION
  Report Type: 
  Country: None (occurrence: None)
  Receive Date: 20080602
  Receipt Date: 20080523
  Transmission Date: 20081010
  Serious: Yes (Life-Threatening, Hospitalization)
  Sender: FDA-Public Use
  Company Number: US-KINGPHARMUSA00001-K200800589

PATIENT

DRUGS (10)
  1. ALTACE [Suspect]
     Indication: CARDIAC FAILURE CONGESTIVE
     Dosage: 3.75 MG, QD
     Dates: end: 20080414
  2. ALTACE [Suspect]
     Indication: HYPERTENSION
  3. AMILORIDE HYDROCHLORIDE [Suspect]
     Indication: OEDEMA
     Dosage: 10 MG, QD
     Dates: end: 20080414
  4. BISOPROLOL FUMARATE [Suspect]
     Dosage: 10 MG, QD
     Dates: end: 20080414
  5. DIGOXIN [Suspect]
     Dosage: ^62.5 MG^, QD
     Route: 048
     Dates: end: 20080414
  6. SPIRONOLACTONE [Suspect]
     Indication: OEDEMA
     Dosage: 25 MG, QD
     Route: 048
     Dates: end: 20080414
  7. BUMETANIDE [Concomitant]
     Indication: OEDEMA
     Dosage: 2 MG, UNK
     Route: 048
     Dates: end: 20080414
  8. GABAPENTIN [Concomitant]
     Dosage: 900 MG, UNK
     Route: 048
     Dates: end: 20080414
  9. WARFARIN SODIUM [Concomitant]
     Indication: ATRIAL FIBRILLATION
     Dosage: UNK, PRN
     Route: 048
     Dates: end: 20080414
  10. WARFARIN SODIUM [Concomitant]
     Indication: HYPERTENSION

REACTIONS (7)
  - ATRIOVENTRICULAR BLOCK COMPLETE [None]
  - BLOOD POTASSIUM INCREASED [None]
  - BLOOD PRESSURE DECREASED [None]
  - DRUG LEVEL INCREASED [None]
  - MALAISE [None]
  - RENAL FAILURE ACUTE [None]
  - SYNCOPE [None]
